FAERS Safety Report 15093179 (Version 1)
Quarter: 2018Q2

REPORT INFORMATION
  Report Type: Spontaneous
  Country: IT (occurrence: IT)
  Receive Date: 20180629
  Receipt Date: 20180629
  Transmission Date: 20180711
  Serious: Yes (Hospitalization)
  Sender: FDA-Public Use
  Company Number: IT-TEVA-2018-IT-917279

PATIENT
  Age: 90 Year
  Sex: Female

DRUGS (5)
  1. SELEPARINA [Concomitant]
     Active Substance: NADROPARIN CALCIUM
     Route: 065
  2. CARDICOR [Concomitant]
     Active Substance: BISOPROLOL
     Route: 065
  3. RAMIPRIL. [Suspect]
     Active Substance: RAMIPRIL
     Indication: HYPERTENSION
     Route: 048
     Dates: start: 20170101, end: 20170708
  4. SERTRALINE [Suspect]
     Active Substance: SERTRALINE HYDROCHLORIDE
     Indication: ANXIETY
     Dosage: 50 MILLIGRAM DAILY;
     Route: 048
     Dates: start: 20170101, end: 20170708
  5. LEVOPRAID [Concomitant]
     Route: 065

REACTIONS (3)
  - Dehydration [Unknown]
  - Confusional state [Unknown]
  - Hyponatraemic syndrome [Unknown]

NARRATIVE: CASE EVENT DATE: 20170708
